FAERS Safety Report 24127429 (Version 13)
Quarter: 2025Q3

REPORT INFORMATION
  Report Type: Spontaneous
  Country: US (occurrence: US)
  Receive Date: 20240723
  Receipt Date: 20250819
  Transmission Date: 20251020
  Serious: Yes (Hospitalization, Other)
  Sender: SANOFI AVENTIS
  Company Number: US-SA-SAC20240722000501

PATIENT
  Age: 74 Year
  Sex: Female
  Weight: 110.55 kg

DRUGS (54)
  1. DUPIXENT [Suspect]
     Active Substance: DUPILUMAB
     Indication: Dermatitis atopic
     Route: 058
  2. DUPIXENT [Suspect]
     Active Substance: DUPILUMAB
     Indication: Asthma
     Dosage: 300 MG, QOW
     Route: 058
     Dates: end: 2024
  3. DUPIXENT [Suspect]
     Active Substance: DUPILUMAB
     Indication: Illness
  4. LANTUS [Concomitant]
     Active Substance: INSULIN GLARGINE
  5. PANTOPRAZOLE SODIUM [Concomitant]
     Active Substance: PANTOPRAZOLE SODIUM
  6. PANTOPRAZOLE SODIUM [Concomitant]
     Active Substance: PANTOPRAZOLE SODIUM
  7. LIDOCAINE [Concomitant]
     Active Substance: LIDOCAINE
  8. LIDOCAINE [Concomitant]
     Active Substance: LIDOCAINE
  9. BUMETANIDE [Concomitant]
     Active Substance: BUMETANIDE
  10. BUMETANIDE [Concomitant]
     Active Substance: BUMETANIDE
  11. BREO ELLIPTA [Concomitant]
     Active Substance: FLUTICASONE FUROATE\VILANTEROL TRIFENATATE
  12. METOPROLOL SUCCINATE [Concomitant]
     Active Substance: METOPROLOL SUCCINATE
  13. METOPROLOL SUCCINATE [Concomitant]
     Active Substance: METOPROLOL SUCCINATE
  14. CALCITRIOL [Concomitant]
     Active Substance: CALCITRIOL
  15. CALCITRIOL [Concomitant]
     Active Substance: CALCITRIOL
  16. CLOBETASOL [Concomitant]
     Active Substance: CLOBETASOL
  17. CLOBETASOL [Concomitant]
     Active Substance: CLOBETASOL
  18. ALBUTEROL SULFATE [Concomitant]
     Active Substance: ALBUTEROL SULFATE
  19. FERROUS SULFATE [Concomitant]
     Active Substance: FERROUS SULFATE
  20. AZELASTINE HYDROCHLORIDE [Concomitant]
     Active Substance: AZELASTINE HYDROCHLORIDE
  21. FLUTICASONE PROPIONATE [Concomitant]
     Active Substance: FLUTICASONE PROPIONATE
  22. MONTELUKAST SODIUM [Concomitant]
     Active Substance: MONTELUKAST SODIUM
  23. HYDRALAZINE HCL [Concomitant]
     Active Substance: HYDRALAZINE HYDROCHLORIDE
  24. TRIAMCINOLONE ACETONIDE [Concomitant]
     Active Substance: TRIAMCINOLONE ACETONIDE
  25. LACTULOSE [Concomitant]
     Active Substance: LACTULOSE
  26. HUMALOG [Concomitant]
     Active Substance: INSULIN LISPRO
  27. BETAMETHASONE DIPROPIONATE [Concomitant]
     Active Substance: BETAMETHASONE DIPROPIONATE
  28. TRADJENTA [Concomitant]
     Active Substance: LINAGLIPTIN
  29. TACROLIMUS [Concomitant]
     Active Substance: TACROLIMUS
  30. MAGNESIUM OXIDE [Concomitant]
     Active Substance: MAGNESIUM OXIDE
  31. ALLOPURINOL [Concomitant]
     Active Substance: ALLOPURINOL
  32. LINZESS [Concomitant]
     Active Substance: LINACLOTIDE
  33. EZETIMIBE [Concomitant]
     Active Substance: EZETIMIBE
  34. VITAMIN D2 [Concomitant]
     Active Substance: ERGOCALCIFEROL
  35. ALBUTEROL SULFATE [Concomitant]
     Active Substance: ALBUTEROL SULFATE
  36. Artificial tears [Concomitant]
  37. HUMALOG [Concomitant]
     Active Substance: INSULIN LISPRO
  38. AZELASTINE HYDROCHLORIDE [Concomitant]
     Active Substance: AZELASTINE HYDROCHLORIDE
  39. BREO ELLIPTA [Concomitant]
     Active Substance: FLUTICASONE FUROATE\VILANTEROL TRIFENATATE
  40. LACTULOSE [Concomitant]
     Active Substance: LACTULOSE
  41. LANTUS [Concomitant]
     Active Substance: INSULIN GLARGINE
  42. POLYETHYLENE GLYCOL [Concomitant]
     Active Substance: POLYETHYLENE GLYCOL
  43. AZELASTINE HYDROCHLORIDE [Concomitant]
     Active Substance: AZELASTINE HYDROCHLORIDE
  44. BUMETANIDE [Concomitant]
     Active Substance: BUMETANIDE
  45. TACROLIMUS [Concomitant]
     Active Substance: TACROLIMUS
  46. LINZESS [Concomitant]
     Active Substance: LINACLOTIDE
  47. HYDRALAZINE HCL [Concomitant]
     Active Substance: HYDRALAZINE HYDROCHLORIDE
  48. CALCITRIOL [Concomitant]
     Active Substance: CALCITRIOL
  49. VITAMIN D2 [Concomitant]
     Active Substance: ERGOCALCIFEROL
  50. MONTELUKAST SODIUM [Concomitant]
     Active Substance: MONTELUKAST SODIUM
  51. LIDOCAINE [Concomitant]
     Active Substance: LIDOCAINE
  52. MAGNESIUM OXIDE [Concomitant]
     Active Substance: MAGNESIUM OXIDE
  53. TRADJENTA [Concomitant]
     Active Substance: LINAGLIPTIN
  54. PANTOPRAZOLE SODIUM [Concomitant]
     Active Substance: PANTOPRAZOLE SODIUM

REACTIONS (25)
  - Cholecystitis [Unknown]
  - Thrombosis [Unknown]
  - Cardiac disorder [Unknown]
  - Ventricular extrasystoles [Unknown]
  - Ovarian cyst [Unknown]
  - Bone pain [Unknown]
  - Pain [Unknown]
  - Gait disturbance [Unknown]
  - Myalgia [Unknown]
  - Pain in extremity [Unknown]
  - Asthma [Unknown]
  - Dyspnoea [Unknown]
  - Oxygen saturation decreased [Unknown]
  - Hospitalisation [Unknown]
  - Motor dysfunction [Unknown]
  - Genital haemorrhage [Unknown]
  - Hypoaesthesia [Unknown]
  - Memory impairment [Unknown]
  - Respiration abnormal [Unknown]
  - Fatigue [Unknown]
  - Peripheral swelling [Unknown]
  - Condition aggravated [Unknown]
  - Neck pain [Unknown]
  - Vision blurred [Unknown]
  - Arthralgia [Unknown]

NARRATIVE: CASE EVENT DATE: 20240101
